FAERS Safety Report 8605531 (Version 3)
Quarter: 2012Q4

REPORT INFORMATION
  Report Type: 
  Country: AT (occurrence: AT)
  Receive Date: 20120608
  Receipt Date: 20121211
  Transmission Date: 20130627
  Serious: Yes (Hospitalization, Other)
  Sender: FDA-Public Use
  Company Number: AT-MPIJNJ-2012-03901

PATIENT

DRUGS (6)
  1. VELCADE [Suspect]
     Indication: THYROID CANCER
     Dosage: 1.3 mg/m2, Cyclic
     Route: 042
     Dates: start: 20070423, end: 20070614
  2. SODIUM CHLORIDE [Concomitant]
     Indication: ANTIEMETIC SUPPORTIVE CARE
     Dosage: 250 ml, UNK
     Route: 042
  3. TROPISETRON HYDROCHLORIDE [Concomitant]
     Indication: ANTIEMETIC SUPPORTIVE CARE
     Dosage: 5 mg, UNK
     Route: 042
  4. OKACIN                             /01068203/ [Concomitant]
     Indication: PRODUCT USED FOR UNKNOWN INDICATION
     Route: 047
  5. PROTAGENT                          /00042801/ [Concomitant]
     Indication: PRODUCT USED FOR UNKNOWN INDICATION
     Route: 047
  6. VIDISIC                            /01024401/ [Concomitant]
     Indication: PRODUCT USED FOR UNKNOWN INDICATION
     Route: 047

REACTIONS (1)
  - Sjogren^s syndrome [Unknown]
